FAERS Safety Report 5678577-8 (Version None)
Quarter: 2008Q1

REPORT INFORMATION
  Report Type: 
  Country: None (occurrence: None)
  Receive Date: 20080325
  Receipt Date: 20080313
  Transmission Date: 20080703
  Serious: Yes (Hospitalization)
  Sender: FDA-Public Use
  Company Number: US-BAYER-200813177NA

PATIENT
  Age: 73 Year
  Sex: Male

DRUGS (9)
  1. SORAFENIB [Suspect]
     Indication: PROSTATE CANCER
     Dosage: TOTAL DAILY DOSE: 800 MG  UNIT DOSE: 200 MG
     Route: 048
     Dates: start: 20071119
  2. DOCETAXEL [Suspect]
     Indication: PROSTATE CANCER
     Route: 042
     Dates: start: 20071119
  3. MOTRIN [Concomitant]
  4. FENTANYL [Concomitant]
  5. TYLENOL W/ CODEINE NO. 3 [Concomitant]
  6. LUPRON [Concomitant]
  7. PREDNISONE TAB [Concomitant]
  8. VITAMIN CAP [Concomitant]
  9. DURAGESIC-100 [Concomitant]

REACTIONS (10)
  - ABDOMINAL PAIN [None]
  - BLOOD CHLORIDE DECREASED [None]
  - BLOOD POTASSIUM DECREASED [None]
  - BLOOD SODIUM DECREASED [None]
  - DEHYDRATION [None]
  - ELECTROLYTE IMBALANCE [None]
  - FATIGUE [None]
  - HYPOCALCAEMIA [None]
  - NAUSEA [None]
  - VOMITING [None]
